FAERS Safety Report 6095269-4 (Version None)
Quarter: 2009Q1

REPORT INFORMATION
  Report Type: 
  Country: None (occurrence: None)
  Receive Date: 20090227
  Receipt Date: 20080225
  Transmission Date: 20090719
  Serious: No
  Sender: FDA-Public Use
  Company Number: A0711634A

PATIENT
  Age: 29 Year
  Sex: Female

DRUGS (5)
  1. LAMICTAL [Suspect]
     Indication: BIPOLAR DISORDER
     Dosage: 300MG PER DAY
     Route: 048
     Dates: start: 20060201
  2. NEXIUM [Concomitant]
  3. LEXAPRO [Concomitant]
  4. MULTI-VITAMIN [Concomitant]
  5. ERYTHROMYCIN [Concomitant]

REACTIONS (1)
  - RASH [None]
